FAERS Safety Report 6675667-8 (Version None)
Quarter: 2010Q2

REPORT INFORMATION
  Report Type: 
  Country: None (occurrence: None)
  Receive Date: 20100409
  Receipt Date: 20100330
  Transmission Date: 20101027
  Serious: Yes (Hospitalization, Other)
  Sender: FDA-Public Use
  Company Number: FR-ELI_LILLY_AND_COMPANY-FR201003008023

PATIENT
  Age: 21 Year
  Sex: Male

DRUGS (4)
  1. ZYPREXA [Suspect]
     Route: 048
     Dates: start: 20090801
  2. RITALIN [Concomitant]
     Dates: start: 20090801
  3. CLONAZEPAM [Concomitant]
     Route: 048
     Dates: start: 20090801
  4. AERIUS [Concomitant]
     Route: 048
     Dates: start: 20090801

REACTIONS (5)
  - BACK PAIN [None]
  - MUSCLE CONTRACTURE [None]
  - MUSCULOSKELETAL PAIN [None]
  - PULMONARY EMBOLISM [None]
  - RHABDOMYOLYSIS [None]
